FAERS Safety Report 18162890 (Version 1)
Quarter: 2020Q3

REPORT INFORMATION
  Report Type: Spontaneous
  Country: BR (occurrence: BR)
  Receive Date: 20200818
  Receipt Date: 20200818
  Transmission Date: 20201103
  Serious: Yes (Other)
  Sender: FDA-Public Use
  Company Number: BR-BAYER-2020-171554

PATIENT
  Age: 29 Year
  Sex: Female

DRUGS (1)
  1. MIRENA [Suspect]
     Active Substance: LEVONORGESTREL
     Dosage: 20 ?G CONTINUOUSLY
     Route: 015
     Dates: start: 20180416, end: 20200811

REACTIONS (6)
  - Hypertension [None]
  - Menstruation delayed [Recovered/Resolved]
  - Device expulsion [None]
  - Polymenorrhoea [Recovered/Resolved with Sequelae]
  - Pelvic pain [Recovered/Resolved with Sequelae]
  - Syncope [None]

NARRATIVE: CASE EVENT DATE: 202005
